FAERS Safety Report 5596276-8 (Version None)
Quarter: 2007Q4

REPORT INFORMATION
  Report Type: 
  Country: None (occurrence: None)
  Receive Date: 20071218
  Receipt Date: 20070122
  Transmission Date: 20080405
  Serious: Yes (Other)
  Sender: FDA-Public Use
  Company Number: 2006027560

PATIENT
  Age: 52 Year
  Sex: Female
  Weight: 80.3 kg

DRUGS (1)
  1. BEXTRA [Suspect]
     Indication: BACK PAIN
     Dosage: (20 MG)
     Dates: start: 20021002

REACTIONS (1)
  - HERPES ZOSTER [None]
